FAERS Safety Report 16374680 (Version 1)
Quarter: 2019Q2

REPORT INFORMATION
  Report Type: Spontaneous
  Country: US (occurrence: US)
  Receive Date: 20190530
  Receipt Date: 20190530
  Transmission Date: 20190711
  Serious: Yes (Other)
  Sender: FDA-Public Use
  Company Number: US-BEH-2019102842

PATIENT
  Sex: Female

DRUGS (1)
  1. HIZENTRA [Suspect]
     Active Substance: HUMAN IMMUNOGLOBULIN G
     Indication: DERMATOMYOSITIS
     Dosage: 20 G, UNK
     Route: 058
     Dates: start: 20190315

REACTIONS (6)
  - Pruritus [Unknown]
  - Headache [Unknown]
  - Polymyositis [Unknown]
  - Pyrexia [Unknown]
  - Back pain [Unknown]
  - Decreased appetite [Unknown]
